FAERS Safety Report 6269989-2 (Version None)
Quarter: 2009Q3

REPORT INFORMATION
  Report Type: 
  Country: None (occurrence: None)
  Receive Date: 20090716
  Receipt Date: 20090707
  Transmission Date: 20100115
  Serious: Yes (Hospitalization, Other)
  Sender: FDA-Public Use
  Company Number: US-JNJFOC-20090505868

PATIENT
  Sex: Male
  Weight: 78.47 kg

DRUGS (1)
  1. REMICADE [Suspect]
     Indication: RHEUMATOID ARTHRITIS
     Dosage: HAD TWO INFUSIONS
     Route: 042

REACTIONS (2)
  - GASTROINTESTINAL TRACT ADENOMA [None]
  - NEPHROLITHIASIS [None]
